FAERS Safety Report 5342130-6 (Version None)
Quarter: 2007Q2

REPORT INFORMATION
  Report Type: 
  Country: None (occurrence: None)
  Receive Date: 20070413
  Receipt Date: 20060808
  Transmission Date: 20071010
  Serious: Yes (Hospitalization)
  Sender: FDA-Public Use
  Company Number: US-JNJFOC-20060601201

PATIENT
  Age: 92 Year
  Sex: Male

DRUGS (4)
  1. VIADUR [Suspect]
     Indication: PROSTATE CANCER
     Dosage: SEE IMAGE
     Route: 058
     Dates: start: 20050501, end: 20060501
  2. VIADUR [Suspect]
     Indication: PROSTATE CANCER
     Dosage: SEE IMAGE
     Route: 058
     Dates: start: 20060505
  3. HYDROCHLOROTHIAZIDE [Concomitant]
  4. CASODEX [Concomitant]

REACTIONS (2)
  - ANAEMIA [None]
  - PRURITUS GENERALISED [None]
